FAERS Safety Report 17583571 (Version 1)
Quarter: 2020Q1

REPORT INFORMATION
  Report Type: Report from Study
  Country: US (occurrence: US)
  Receive Date: 20200326
  Receipt Date: 20200326
  Transmission Date: 20200409
  Serious: Yes (Other)
  Sender: FDA-Public Use
  Company Number: NVSC2020US072803

PATIENT
  Age: 5 Month
  Sex: Male
  Weight: 7.06 kg

DRUGS (6)
  1. PREDNISOLONE. [Concomitant]
     Active Substance: PREDNISOLONE
     Indication: PROPHYLAXIS
     Dosage: 2 MG/KG, QD
     Route: 065
  2. LMX 4 [Concomitant]
     Indication: PRODUCT USED FOR UNKNOWN INDICATION
     Dosage: UNK, PRN
     Route: 061
  3. PREDNISOLONE. [Concomitant]
     Active Substance: PREDNISOLONE
     Dosage: 14.4 MG, QD
     Route: 048
     Dates: end: 20200312
  4. ZOLGENSMA [Suspect]
     Active Substance: ONASEMNOGENE ABEPARVOVEC-XIOI
     Indication: SPINAL MUSCULAR ATROPHY
     Dosage: 41.3 ML, ONCE/SINGLE (1 KIT)
     Route: 042
     Dates: start: 20200304, end: 20200304
  5. XYLOCAINE URETRAL [Concomitant]
     Dosage: UNK, PRN (2 % JELLY)
     Route: 061
  6. XYLOCAINE URETRAL [Concomitant]
     Indication: PRODUCT USED FOR UNKNOWN INDICATION
     Dosage: UNK UNK, PRN
     Route: 066

REACTIONS (10)
  - White blood cell count decreased [Unknown]
  - Immature granulocyte count increased [Unknown]
  - Blood bilirubin decreased [Unknown]
  - Dehydration [Recovering/Resolving]
  - Red cell distribution width decreased [Unknown]
  - Dysphagia [Recovering/Resolving]
  - Failure to thrive [Recovering/Resolving]
  - Aspartate aminotransferase increased [Unknown]
  - Platelet count decreased [Unknown]
  - Alanine aminotransferase increased [Unknown]

NARRATIVE: CASE EVENT DATE: 20200309
